FAERS Safety Report 12432665 (Version 1)
Quarter: 2016Q2

REPORT INFORMATION
  Report Type: Spontaneous
  Country: ES (occurrence: ES)
  Receive Date: 20160603
  Receipt Date: 20160603
  Transmission Date: 20160815
  Serious: Yes (Other)
  Sender: FDA-Public Use
  Company Number: ES-KOWA-16EU001016

PATIENT
  Age: 52 Year
  Sex: Female

DRUGS (1)
  1. PITAVASTATIN [Suspect]
     Active Substance: PITAVASTATIN
     Indication: TYPE IIA HYPERLIPIDAEMIA
     Dosage: 1 MG, QD
     Route: 065

REACTIONS (2)
  - Muscle contractions involuntary [Not Recovered/Not Resolved]
  - Muscle spasms [Not Recovered/Not Resolved]
